FAERS Safety Report 7141606-9 (Version None)
Quarter: 2010Q4

REPORT INFORMATION
  Report Type: 
  Country: None (occurrence: None)
  Receive Date: 20101203
  Receipt Date: 20101203
  Transmission Date: 20110411
  Serious: No
  Sender: FDA-Public Use
  Company Number: None

PATIENT
  Age: 80 Year
  Sex: Female
  Weight: 61.2356 kg

DRUGS (1)
  1. MOVIPREP [Suspect]
     Indication: COLONOSCOPY

REACTIONS (2)
  - INSOMNIA [None]
  - MALAISE [None]
